FAERS Safety Report 6876711-5 (Version None)
Quarter: 2010Q3

REPORT INFORMATION
  Report Type: 
  Country: None (occurrence: None)
  Receive Date: 20100727
  Receipt Date: 20100720
  Transmission Date: 20110219
  Serious: Yes (Other)
  Sender: FDA-Public Use
  Company Number: JP-B.I. PHARMACEUTICALS,INC./RIDGEFIELD-2010-BP-07883YA

PATIENT
  Age: 69 Year
  Sex: Male

DRUGS (7)
  1. HARNAL (TAMSULOSIN) ORODISPERSABLE CR [Suspect]
     Dosage: 0.2 MG
     Route: 048
     Dates: start: 20100420
  2. AMLODIPINE BESYLATE [Concomitant]
     Route: 048
     Dates: start: 20090701
  3. CANDESARTAN CILEXETIL [Concomitant]
     Route: 048
     Dates: start: 20091201
  4. ARICEPT [Concomitant]
     Dates: start: 20100517
  5. DISOPAIN (MOFEZOLAC) [Concomitant]
     Route: 048
     Dates: start: 20100615
  6. SELBEX (TEPRENONE) [Concomitant]
     Route: 048
     Dates: start: 20100615
  7. VOLTAREN [Concomitant]
     Dates: start: 20100615

REACTIONS (1)
  - DEMENTIA [None]
